FAERS Safety Report 6401880-0 (Version None)
Quarter: 2009Q4

REPORT INFORMATION
  Report Type: 
  Country: None (occurrence: None)
  Receive Date: 20091013
  Receipt Date: 20091013
  Transmission Date: 20100525
  Serious: Yes (Death)
  Sender: FDA-Public Use
  Company Number: None

PATIENT
  Age: 44 Year
  Sex: Female
  Weight: 72.5755 kg

DRUGS (1)
  1. OCELLA 3MG BARR LABORATORIES [Suspect]
     Indication: CONTRACEPTION
     Dosage: 3MG 1 A DAY PO
     Route: 048
     Dates: start: 20081014, end: 20081120

REACTIONS (7)
  - CARDIAC MURMUR [None]
  - DYSPNOEA [None]
  - FALL [None]
  - MIGRAINE [None]
  - PULMONARY EMBOLISM [None]
  - VISUAL IMPAIRMENT [None]
  - VITREOUS FLOATERS [None]
